FAERS Safety Report 16897412 (Version 1)
Quarter: 2019Q4

REPORT INFORMATION
  Report Type: Spontaneous
  Country: US (occurrence: US)
  Receive Date: 20191009
  Receipt Date: 20191009
  Transmission Date: 20200122
  Serious: Yes (Hospitalization, Other)
  Sender: FDA-Public Use
  Company Number: US-UNITED THERAPEUTICS-UNT-2019-014824

PATIENT
  Age: 47 Year
  Sex: Male
  Weight: 81.63 kg

DRUGS (3)
  1. REMODULIN [Suspect]
     Active Substance: TREPROSTINIL
     Dosage: UNK, CONTINUING
     Route: 041
  2. OPSUMIT [Concomitant]
     Active Substance: MACITENTAN
     Indication: PRODUCT USED FOR UNKNOWN INDICATION
     Dosage: UNK
     Route: 065
  3. REMODULIN [Suspect]
     Active Substance: TREPROSTINIL
     Indication: PULMONARY ARTERIAL HYPERTENSION
     Dosage: 0.087 ?G/KG, CONTINUING
     Route: 041
     Dates: start: 20190716

REACTIONS (5)
  - Vascular device infection [Unknown]
  - Staphylococcal infection [Unknown]
  - Catheter site discharge [Unknown]
  - Catheter site rash [Unknown]
  - Catheter site irritation [Not Recovered/Not Resolved]

NARRATIVE: CASE EVENT DATE: 2019
